FAERS Safety Report 14091887 (Version 5)
Quarter: 2018Q3

REPORT INFORMATION
  Report Type: Report from Study
  Country: PA (occurrence: PA)
  Receive Date: 20171016
  Receipt Date: 20180828
  Transmission Date: 20181010
  Serious: Yes (Other)
  Sender: FDA-Public Use
  Company Number: PHHY2015PA061365

PATIENT
  Age: 40 Year
  Sex: Female
  Weight: 81.63 kg

DRUGS (3)
  1. GILENYA [Suspect]
     Active Substance: FINGOLIMOD HYDROCHLORIDE
     Dosage: 0.5 MG, QD
     Route: 065
     Dates: start: 20160707
  2. GILENYA [Suspect]
     Active Substance: FINGOLIMOD HYDROCHLORIDE
     Indication: MULTIPLE SCLEROSIS
     Dosage: 0.5 MG, QD
     Route: 048
     Dates: start: 201404
  3. FOLIC ACID. [Concomitant]
     Active Substance: FOLIC ACID
     Indication: PRODUCT USED FOR UNKNOWN INDICATION
     Dosage: 5 MG, QD
     Route: 065

REACTIONS (24)
  - Nausea [Unknown]
  - Nasopharyngitis [Not Recovered/Not Resolved]
  - Insomnia [Unknown]
  - Choking sensation [Unknown]
  - Pulpitis dental [Unknown]
  - Herpes simplex [Recovering/Resolving]
  - Pruritus [Unknown]
  - Somnolence [Unknown]
  - Fatigue [Unknown]
  - Decreased immune responsiveness [Unknown]
  - Neck pain [Unknown]
  - Seizure [Unknown]
  - Lymphocyte count decreased [Unknown]
  - Low density lipoprotein increased [Unknown]
  - Blood cholesterol increased [Unknown]
  - Toothache [Unknown]
  - Nasal congestion [Unknown]
  - Dizziness [Unknown]
  - Back pain [Unknown]
  - Malaise [Unknown]
  - Stress [Unknown]
  - Platelet count increased [Unknown]
  - Emotional disorder [Unknown]
  - Blister [Unknown]

NARRATIVE: CASE EVENT DATE: 20160706
